FAERS Safety Report 24819435 (Version 1)
Quarter: 2025Q1

REPORT INFORMATION
  Report Type: Report from Study
  Country: CA (occurrence: CA)
  Receive Date: 20250108
  Receipt Date: 20250108
  Transmission Date: 20250409
  Serious: Yes (Hospitalization)
  Sender: TAKEDA
  Company Number: CA-TAKEDA-2024TUS130727

PATIENT
  Age: 43 Year
  Sex: Female

DRUGS (6)
  1. VEDOLIZUMAB [Suspect]
     Active Substance: VEDOLIZUMAB
     Indication: Colitis ulcerative
  2. VEDOLIZUMAB [Suspect]
     Active Substance: VEDOLIZUMAB
     Dosage: 300 MILLIGRAM, Q4WEEKS
     Dates: start: 20201027
  3. PREDNISONE [Concomitant]
     Active Substance: PREDNISONE
  4. ASACOL [Concomitant]
     Active Substance: MESALAMINE
     Dosage: 4.8 GRAM, QD
     Dates: start: 2008
  5. PENTASA [Concomitant]
     Active Substance: MESALAMINE
  6. XARELTO [Concomitant]
     Active Substance: RIVAROXABAN
     Indication: Pulmonary embolism

REACTIONS (2)
  - Pharyngitis [Recovered/Resolved]
  - Off label use [Unknown]

NARRATIVE: CASE EVENT DATE: 20201027
